FAERS Safety Report 11148647 (Version 1)
Quarter: 2015Q2

REPORT INFORMATION
  Report Type: Spontaneous
  Country: US (occurrence: US)
  Receive Date: 20150529
  Receipt Date: 20150529
  Transmission Date: 20150821
  Serious: Yes (Other)
  Sender: FDA-Public Use
  Company Number: US-LPDUSPRD-20150376

PATIENT
  Age: 33 Week
  Weight: 4.99 kg

DRUGS (2)
  1. TOTAL PARENTERAL NUTRITION [Concomitant]
     Active Substance: UNSPECIFIED INGREDIENT
     Dosage: DOSE NOT PROVIDED
     Route: 042
  2. VENOFER [Suspect]
     Active Substance: IRON SUCROSE
     Dosage: UNK. DOSE ADMINISTERED WEEKLY
     Route: 042

REACTIONS (1)
  - Medical device complication [Unknown]
